FAERS Safety Report 25411728 (Version 2)
Quarter: 2025Q3

REPORT INFORMATION
  Report Type: Spontaneous
  Country: EU (occurrence: EU)
  Receive Date: 20250609
  Receipt Date: 20250709
  Transmission Date: 20251021
  Serious: Yes (Other)
  Sender: MYLAN
  Company Number: EU-SANDOZ-SDZ2025AT036382

PATIENT
  Sex: Female

DRUGS (12)
  1. IMATINIB [Suspect]
     Active Substance: IMATINIB
     Indication: Gastrointestinal stromal tumour
  2. IMATINIB [Suspect]
     Active Substance: IMATINIB
     Indication: TP53 gene mutation
     Route: 065
  3. IMATINIB [Suspect]
     Active Substance: IMATINIB
     Route: 065
  4. IMATINIB [Suspect]
     Active Substance: IMATINIB
  5. SUNITINIB [Suspect]
     Active Substance: SUNITINIB
     Indication: Gastrointestinal stromal tumour
  6. SUNITINIB [Suspect]
     Active Substance: SUNITINIB
     Indication: TP53 gene mutation
     Route: 065
  7. SUNITINIB [Suspect]
     Active Substance: SUNITINIB
     Route: 065
  8. SUNITINIB [Suspect]
     Active Substance: SUNITINIB
  9. PAZOPANIB [Concomitant]
     Active Substance: PAZOPANIB
     Indication: Product used for unknown indication
  10. PAZOPANIB [Concomitant]
     Active Substance: PAZOPANIB
     Route: 065
  11. PAZOPANIB [Concomitant]
     Active Substance: PAZOPANIB
     Route: 065
  12. PAZOPANIB [Concomitant]
     Active Substance: PAZOPANIB

REACTIONS (3)
  - Gastrointestinal stromal tumour [Unknown]
  - Disease progression [Unknown]
  - TP53 gene mutation [Unknown]
